FAERS Safety Report 25634318 (Version 3)
Quarter: 2025Q4

REPORT INFORMATION
  Report Type: Spontaneous
  Country: EU (occurrence: EU)
  Receive Date: 20250801
  Receipt Date: 20251002
  Transmission Date: 20260117
  Serious: Yes (Other)
  Sender: ABBVIE
  Company Number: None

PATIENT
  Age: 30 Year
  Sex: Female
  Weight: 65 kg

DRUGS (1)
  1. RINVOQ [Suspect]
     Active Substance: UPADACITINIB
     Indication: Dermatitis atopic
     Dosage: 28 TABLET
     Route: 048
     Dates: start: 20241101, end: 20250703

REACTIONS (5)
  - Amenorrhoea [Unknown]
  - Anti-Muellerian hormone level decreased [Unknown]
  - Adenomyosis [Not Recovered/Not Resolved]
  - Menstrual disorder [Not Recovered/Not Resolved]
  - Adnexa uteri pain [Unknown]

NARRATIVE: CASE EVENT DATE: 20241201
